FAERS Safety Report 6752090-9 (Version None)
Quarter: 2010Q2

REPORT INFORMATION
  Report Type: 
  Country: None (occurrence: None)
  Receive Date: 20100602
  Receipt Date: 20100521
  Transmission Date: 20101027
  Serious: Yes (Other)
  Sender: FDA-Public Use
  Company Number: MY-PFIZER INC-2010063814

PATIENT
  Age: 63 Year
  Sex: Female

DRUGS (5)
  1. DILANTIN [Suspect]
     Indication: CONVULSION PROPHYLAXIS
     Dosage: 300 MG DAILY
     Route: 042
     Dates: start: 20081105
  2. H-PERAN [Suspect]
     Dosage: 30 MG, 1X/DAY
     Route: 042
     Dates: start: 20081105
  3. CORDARONE [Suspect]
     Indication: ARRHYTHMIA
     Dosage: 600 MG DAILY
     Route: 042
     Dates: start: 20081105
  4. ERYTHROMYCIN LACTOBIONATE [Suspect]
     Dosage: 375 MG, 1X/DAY
     Route: 042
     Dates: start: 20081105
  5. PROPOFOL [Suspect]
     Indication: ANAESTHETIC PREMEDICATION
     Dosage: 10 MG, 1X/DAY
     Route: 042
     Dates: start: 20081105

REACTIONS (2)
  - ALANINE AMINOTRANSFERASE INCREASED [None]
  - BLOOD ALKALINE PHOSPHATASE INCREASED [None]
